FAERS Safety Report 20442944 (Version 8)
Quarter: 2022Q4

REPORT INFORMATION
  Report Type: Report from Study
  Country: JP (occurrence: JP)
  Receive Date: 20220208
  Receipt Date: 20221107
  Transmission Date: 20230112
  Serious: Yes (Hospitalization, Other)
  Sender: FDA-Public Use
  Company Number: JP-CHUGAI-2021000410AA

PATIENT
  Age: 71 Year
  Sex: Male
  Weight: 59 kg

DRUGS (24)
  1. BEVACIZUMAB [Suspect]
     Active Substance: BEVACIZUMAB
     Indication: Adenocarcinoma of colon
     Route: 041
     Dates: start: 20210428, end: 20210428
  2. BEVACIZUMAB [Suspect]
     Active Substance: BEVACIZUMAB
     Route: 041
     Dates: start: 20210526, end: 20210526
  3. BEVACIZUMAB [Suspect]
     Active Substance: BEVACIZUMAB
     Route: 041
     Dates: start: 20210707, end: 20210818
  4. BEVACIZUMAB [Suspect]
     Active Substance: BEVACIZUMAB
     Route: 041
     Dates: start: 20210915, end: 20211027
  5. CAPECITABINE [Suspect]
     Active Substance: CAPECITABINE
     Indication: Adenocarcinoma of colon
     Route: 048
     Dates: start: 20210428, end: 20210428
  6. CAPECITABINE [Suspect]
     Active Substance: CAPECITABINE
     Route: 048
     Dates: start: 20210526, end: 20210818
  7. CAPECITABINE [Suspect]
     Active Substance: CAPECITABINE
     Route: 048
     Dates: start: 20210915, end: 20211208
  8. CAPECITABINE [Suspect]
     Active Substance: CAPECITABINE
     Route: 048
     Dates: start: 20220216, end: 20220216
  9. CAPECITABINE [Suspect]
     Active Substance: CAPECITABINE
     Dosage: 600 MILLIGRAM, QD
     Route: 048
     Dates: start: 20220126, end: 20220713
  10. CAPECITABINE [Suspect]
     Active Substance: CAPECITABINE
     Dosage: 600 MILLIGRAM, ONCE/3WEEKS
     Route: 048
     Dates: start: 20220309, end: 20220713
  11. IRINOTECAN HYDROCHLORIDE [Concomitant]
     Active Substance: IRINOTECAN HYDROCHLORIDE
     Indication: Adenocarcinoma of colon
     Dosage: 327 MILLIGRAM, ONCE/3WEEKS
     Route: 041
     Dates: start: 20210428, end: 20210428
  12. IRINOTECAN HYDROCHLORIDE [Concomitant]
     Active Substance: IRINOTECAN HYDROCHLORIDE
     Dosage: 240 MILLIGRAM, ONCE/3WEEKS
     Route: 041
     Dates: start: 20210526, end: 20210818
  13. OXALIPLATIN [Concomitant]
     Active Substance: OXALIPLATIN
     Indication: Adenocarcinoma of colon
     Dosage: 212 MILLIGRAM, ONCE/3WEEKS
     Route: 041
     Dates: start: 20210428, end: 20210428
  14. OXALIPLATIN [Concomitant]
     Active Substance: OXALIPLATIN
     Dosage: 163 UNK, ONCE/3WEEKS
     Route: 041
     Dates: start: 20210526, end: 20210818
  15. PALONOSETRON HYDROCHLORIDE [Concomitant]
     Active Substance: PALONOSETRON HYDROCHLORIDE
     Dosage: 0.75 MILLIGRAM, ONCE/3WEEKS
     Route: 042
     Dates: start: 20210428, end: 20210428
  16. PALONOSETRON HYDROCHLORIDE [Concomitant]
     Active Substance: PALONOSETRON HYDROCHLORIDE
     Dosage: 0.75 MILLIGRAM, ONCE/3WEEKS
     Route: 042
     Dates: start: 20210526, end: 20210818
  17. DEXAMETHASONE SODIUM PHOSPHATE [Concomitant]
     Active Substance: DEXAMETHASONE SODIUM PHOSPHATE
     Dosage: 9.9 MILLIGRAM, ONCE/3WEEKS
     Route: 042
     Dates: start: 20210428, end: 20210428
  18. DEXAMETHASONE SODIUM PHOSPHATE [Concomitant]
     Active Substance: DEXAMETHASONE SODIUM PHOSPHATE
     Dosage: 9.9 MILLIGRAM, ONCE/3WEEKS
     Route: 042
     Dates: start: 20210526, end: 20210818
  19. DEXAMETHASONE [Concomitant]
     Active Substance: DEXAMETHASONE
     Dosage: 8 MILLIGRAM, ONCE/3WEEKS
     Route: 048
     Dates: start: 20210429, end: 20210501
  20. DEXAMETHASONE [Concomitant]
     Active Substance: DEXAMETHASONE
     Dosage: 8 MILLIGRAM, ONCE/3WEEKS
     Route: 048
     Dates: start: 20210527, end: 20210821
  21. APREPITANT [Concomitant]
     Active Substance: APREPITANT
     Dosage: 125 MILLIGRAM, ONCE/3WEEKS
     Route: 048
     Dates: start: 20210428, end: 20210428
  22. APREPITANT [Concomitant]
     Active Substance: APREPITANT
     Dosage: 125 MILLIGRAM, ONCE/3WEEKS
     Route: 048
     Dates: start: 20210429, end: 20210430
  23. APREPITANT [Concomitant]
     Active Substance: APREPITANT
     Dosage: 125 MILLIGRAM, ONCE/3WEEKS
     Route: 048
     Dates: start: 20210526, end: 20210818
  24. APREPITANT [Concomitant]
     Active Substance: APREPITANT
     Dosage: 125 MILLIGRAM, ONCE/3WEEKS
     Route: 048
     Dates: start: 20210527, end: 20210820

REACTIONS (3)
  - Diarrhoea [Recovered/Resolved]
  - Febrile neutropenia [Recovered/Resolved]
  - Proteinuria [Unknown]

NARRATIVE: CASE EVENT DATE: 20210506
